FAERS Safety Report 9394259 (Version 2)
Quarter: 2013Q3

REPORT INFORMATION
  Report Type: Spontaneous
  Country: US (occurrence: US)
  Receive Date: 20130711
  Receipt Date: 20130730
  Transmission Date: 20140515
  Serious: No
  Sender: FDA-Public Use
  Company Number: US-009507513-1307USA004884

PATIENT
  Age: 81 Year
  Sex: Male
  Weight: 82.86 kg

DRUGS (4)
  1. JANUMET [Suspect]
     Indication: DIABETES MELLITUS
     Dosage: 1 DF, QD
     Route: 048
     Dates: start: 2009
  2. CRESTOR [Concomitant]
  3. BENICAR [Concomitant]
  4. JALYN [Concomitant]

REACTIONS (2)
  - Urinary tract infection staphylococcal [Recovered/Resolved]
  - Lipase increased [Not Recovered/Not Resolved]
